FAERS Safety Report 16188471 (Version 1)
Quarter: 2019Q2

REPORT INFORMATION
  Report Type: Spontaneous
  Country: CN (occurrence: CN)
  Receive Date: 20190412
  Receipt Date: 20190412
  Transmission Date: 20190711
  Serious: Yes (Other)
  Sender: FDA-Public Use
  Company Number: CN-ROCHE-2295780

PATIENT
  Age: 67 Year
  Sex: Female

DRUGS (10)
  1. FULVESTRANT. [Concomitant]
     Active Substance: FULVESTRANT
     Indication: LUNG NEOPLASM MALIGNANT
     Route: 065
     Dates: start: 20171218
  2. CAPECITABINE. [Suspect]
     Active Substance: CAPECITABINE
     Indication: LUNG NEOPLASM MALIGNANT
     Route: 065
  3. EVEROLIMUS. [Concomitant]
     Active Substance: EVEROLIMUS
     Indication: INVASIVE BREAST CARCINOMA
     Dosage: ONGOING
     Route: 065
     Dates: start: 20170103
  4. ANASTROZOLE. [Concomitant]
     Active Substance: ANASTROZOLE
     Indication: LUNG NEOPLASM MALIGNANT
     Route: 065
     Dates: start: 20160601
  5. FULVESTRANT. [Concomitant]
     Active Substance: FULVESTRANT
     Indication: INVASIVE BREAST CARCINOMA
     Route: 065
     Dates: start: 20170103
  6. CAPECITABINE. [Suspect]
     Active Substance: CAPECITABINE
     Indication: INVASIVE BREAST CARCINOMA
  7. ANASTROZOLE. [Concomitant]
     Active Substance: ANASTROZOLE
     Indication: INVASIVE BREAST CARCINOMA
  8. GEFITINIB. [Concomitant]
     Active Substance: GEFITINIB
     Indication: LUNG NEOPLASM MALIGNANT
     Dosage: ONGOING
     Route: 065
     Dates: start: 20180415
  9. EVEROLIMUS. [Concomitant]
     Active Substance: EVEROLIMUS
     Indication: LUNG NEOPLASM MALIGNANT
     Route: 065
     Dates: start: 20171218
  10. GEFITINIB. [Concomitant]
     Active Substance: GEFITINIB
     Indication: INVASIVE BREAST CARCINOMA

REACTIONS (6)
  - Palmar-plantar erythrodysaesthesia syndrome [Unknown]
  - Interstitial lung disease [Unknown]
  - Pleural effusion [Unknown]
  - Chest pain [Unknown]
  - Cough [Recovering/Resolving]
  - Asthma [Recovering/Resolving]
